FAERS Safety Report 20062190 (Version 1)
Quarter: 2021Q4

REPORT INFORMATION
  Report Type: Spontaneous
  Country: IT (occurrence: IT)
  Receive Date: 20211112
  Receipt Date: 20211112
  Transmission Date: 20220303
  Serious: Yes (Other)
  Sender: FDA-Public Use
  Company Number: None

PATIENT
  Age: 62 Year
  Sex: Male

DRUGS (2)
  1. PEMETREXED [Suspect]
     Active Substance: PEMETREXED
     Indication: Pleural mesothelioma
     Dosage: 900 MG
     Route: 042
     Dates: start: 20210329
  2. CARBOPLATIN [Suspect]
     Active Substance: CARBOPLATIN
     Indication: Pleural mesothelioma
     Dosage: 300 ML
     Route: 042
     Dates: start: 20210329, end: 20210621

REACTIONS (1)
  - Haematotoxicity [Recovering/Resolving]

NARRATIVE: CASE EVENT DATE: 20210420
